FAERS Safety Report 10227130 (Version 9)
Quarter: 2015Q4

REPORT INFORMATION
  Report Type: Spontaneous
  Country: CA (occurrence: CA)
  Receive Date: 20140610
  Receipt Date: 20151023
  Transmission Date: 20160304
  Serious: Yes (Other)
  Sender: FDA-Public Use
  Company Number: CA-ROCHE-1326762

PATIENT
  Age: 61 Year
  Sex: Female
  Weight: 62 kg

DRUGS (10)
  1. XOLAIR [Suspect]
     Active Substance: OMALIZUMAB
     Route: 058
     Dates: start: 20140702
  2. PREDNISONE. [Concomitant]
     Active Substance: PREDNISONE
     Dosage: FOR EVERY 5 DAYS, TAPERED DOWN BY 5 MG EVERY 2 DAYS TILL OFF.
     Route: 065
  3. XOLAIR [Suspect]
     Active Substance: OMALIZUMAB
     Indication: ASTHMA
     Route: 058
     Dates: start: 20121203
  4. XOLAIR [Suspect]
     Active Substance: OMALIZUMAB
     Route: 058
     Dates: start: 20130128
  5. XOLAIR [Suspect]
     Active Substance: OMALIZUMAB
     Route: 058
     Dates: start: 20150317
  6. XOLAIR [Suspect]
     Active Substance: OMALIZUMAB
     Route: 058
     Dates: start: 20150512
  7. SINGULAIR [Concomitant]
     Active Substance: MONTELUKAST SODIUM
  8. XOLAIR [Suspect]
     Active Substance: OMALIZUMAB
     Route: 058
     Dates: start: 20130225
  9. XOLAIR [Suspect]
     Active Substance: OMALIZUMAB
     Route: 058
     Dates: start: 20130911
  10. ADVAIR HFA [Concomitant]
     Active Substance: FLUTICASONE PROPIONATE\SALMETEROL XINAFOATE

REACTIONS (13)
  - Bronchitis [Unknown]
  - Cough [Unknown]
  - Weight decreased [Unknown]
  - Oropharyngeal pain [Unknown]
  - Fall [Unknown]
  - Lower limb fracture [Unknown]
  - Asthma [Unknown]
  - Sputum discoloured [Unknown]
  - Rales [Unknown]
  - Respiratory disorder [Unknown]
  - Blood pressure increased [Unknown]
  - Nasopharyngitis [Unknown]
  - Malaise [Unknown]

NARRATIVE: CASE EVENT DATE: 201502
